FAERS Safety Report 21314133 (Version 2)
Quarter: 2023Q2

REPORT INFORMATION
  Report Type: Report from Study
  Country: US (occurrence: US)
  Receive Date: 20220909
  Receipt Date: 20230526
  Transmission Date: 20230722
  Serious: Yes (Other)
  Sender: FDA-Public Use
  Company Number: US-ABBVIE-22K-163-4532477-00

PATIENT
  Age: 66 Year
  Sex: Male

DRUGS (1)
  1. HUMIRA [Suspect]
     Active Substance: ADALIMUMAB
     Indication: Rheumatoid arthritis
     Dosage: CITRATE FREE?FORM STRENGTH: 40 MILLIGRAM
     Route: 058
     Dates: start: 20220505

REACTIONS (6)
  - Pericardial effusion [Unknown]
  - Hypoacusis [Not Recovered/Not Resolved]
  - Middle ear effusion [Unknown]
  - Abdominal hernia [Unknown]
  - Chest discomfort [Not Recovered/Not Resolved]
  - Ear tube insertion [Unknown]

NARRATIVE: CASE EVENT DATE: 20220801
